FAERS Safety Report 25009338 (Version 1)
Quarter: 2025Q1

REPORT INFORMATION
  Report Type: Spontaneous
  Country: BE (occurrence: BE)
  Receive Date: 20250225
  Receipt Date: 20250225
  Transmission Date: 20250409
  Serious: Yes (Other)
  Sender: ABBVIE
  Company Number: BE-ABBVIE-6141396

PATIENT
  Sex: Female

DRUGS (3)
  1. SKYRIZI [Suspect]
     Active Substance: RISANKIZUMAB-RZAA
     Indication: Product used for unknown indication
     Dosage: FIRST DOSE?FORM STRENGTH- 360 MG
     Route: 058
     Dates: start: 2024, end: 2024
  2. SKYRIZI [Suspect]
     Active Substance: RISANKIZUMAB-RZAA
     Dosage: THIRD DOSE?FORM STRENGTH- 360 MG
     Route: 058
     Dates: start: 20250108, end: 20250108
  3. SKYRIZI [Suspect]
     Active Substance: RISANKIZUMAB-RZAA
     Dosage: SECOND DOSE?FORM STRENGTH- 360 MG
     Route: 058
     Dates: start: 20241112, end: 20241112

REACTIONS (3)
  - Surgery [Unknown]
  - Post procedural discomfort [Unknown]
  - Abdominal discomfort [Unknown]
